FAERS Safety Report 21161057 (Version 1)
Quarter: 2022Q3

REPORT INFORMATION
  Report Type: Spontaneous
  Country: US (occurrence: None)
  Receive Date: 20220801
  Receipt Date: 20220801
  Transmission Date: 20221027
  Serious: Yes (Other)
  Sender: FDA-Public Use
  Company Number: None

PATIENT
  Age: 34 Year
  Sex: Male
  Weight: 85.7 kg

DRUGS (13)
  1. LUMASON [Suspect]
     Active Substance: SULFUR HEXAFLUORIDE
     Indication: X-ray with contrast
     Dosage: OTHER FREQUENCY : ONCE;?
     Route: 042
     Dates: start: 20220614, end: 20220614
  2. ACETAMINOPHEN [Concomitant]
     Active Substance: ACETAMINOPHEN
     Dates: start: 20220613, end: 20220618
  3. ASPIRIN [Concomitant]
     Active Substance: ASPIRIN
     Dates: start: 20220607, end: 20220618
  4. BISACODYL [Concomitant]
     Active Substance: BISACODYL
     Dates: start: 20220607, end: 20220616
  5. FAMOTIDINE [Concomitant]
     Active Substance: FAMOTIDINE
     Dates: start: 20220606, end: 20220618
  6. GABAPENTIN [Concomitant]
     Active Substance: GABAPENTIN
     Dates: start: 20220608, end: 20220618
  7. HYDROMORPHONE [Concomitant]
     Active Substance: HYDROMORPHONE
     Dates: start: 20220609, end: 20220616
  8. LIDOCAINE PATCH [Concomitant]
     Active Substance: LIDOCAINE
     Dates: start: 20220609, end: 20220616
  9. MAGNESIUM OXIDE [Concomitant]
     Active Substance: MAGNESIUM OXIDE
     Dates: start: 20220608, end: 20220616
  10. MELATONIN [Concomitant]
     Active Substance: MELATONIN
     Dates: start: 20220613, end: 20220618
  11. POLYETHYLENE GLYCOL [Concomitant]
     Active Substance: POLYETHYLENE GLYCOL
     Dates: start: 20220610, end: 20220618
  12. SENNA [Concomitant]
     Active Substance: SENNA LEAF\SENNOSIDES\SENNOSIDES A AND B
     Dates: start: 20220606, end: 20220618
  13. SERTRALINE [Concomitant]
     Active Substance: SERTRALINE HYDROCHLORIDE
     Dates: start: 20220607, end: 20220618

REACTIONS (4)
  - Sinus tachycardia [None]
  - Hyperhidrosis [None]
  - Presyncope [None]
  - Abdominal discomfort [None]

NARRATIVE: CASE EVENT DATE: 20220614
